FAERS Safety Report 6302340-8 (Version None)
Quarter: 2009Q3

REPORT INFORMATION
  Report Type: 
  Country: None (occurrence: None)
  Receive Date: 20090810
  Receipt Date: 20090731
  Transmission Date: 20100115
  Serious: Yes (Hospitalization, Other)
  Sender: FDA-Public Use
  Company Number: US-CELGENEUS-163-20785-09072433

PATIENT
  Sex: Female

DRUGS (5)
  1. THALOMID [Suspect]
     Indication: MULTIPLE MYELOMA
     Route: 048
     Dates: start: 20071101
  2. THALOMID [Suspect]
     Dosage: 200 MG - 100 MG
     Route: 048
     Dates: start: 20070801, end: 20071101
  3. ZOLEDRONIC ACID [Suspect]
     Indication: MULTIPLE MYELOMA
     Route: 051
     Dates: start: 20081015
  4. VITAMIN D [Concomitant]
     Indication: DRUG USE FOR UNKNOWN INDICATION
     Route: 065
  5. CALCIUM [Concomitant]
     Indication: DRUG USE FOR UNKNOWN INDICATION
     Route: 065

REACTIONS (9)
  - ASTHENIA [None]
  - DIARRHOEA [None]
  - GASTROENTERITIS VIRAL [None]
  - HYPOTENSION [None]
  - IRON DEFICIENCY ANAEMIA [None]
  - NEUTROPENIA [None]
  - PAIN [None]
  - TACHYCARDIA [None]
  - URINARY RETENTION [None]
